FAERS Safety Report 6049984-9 (Version None)
Quarter: 2009Q1

REPORT INFORMATION
  Report Type: 
  Country: None (occurrence: None)
  Receive Date: 20090121
  Receipt Date: 20090107
  Transmission Date: 20090719
  Serious: Yes (Death)
  Sender: FDA-Public Use
  Company Number: 2009EK000010

PATIENT

DRUGS (1)
  1. NICARDIPINE HCL [Suspect]
     Indication: VASOSPASM
     Dosage: IART
     Route: 013

REACTIONS (2)
  - CEREBROVASCULAR SPASM [None]
  - PNEUMONIA [None]
